FAERS Safety Report 6635248-9 (Version None)
Quarter: 2010Q1

REPORT INFORMATION
  Report Type: 
  Country: None (occurrence: None)
  Receive Date: 20100315
  Receipt Date: 20100303
  Transmission Date: 20100710
  Serious: Yes (Other)
  Sender: FDA-Public Use
  Company Number: US-PFIZER INC-2010028309

PATIENT
  Sex: Male

DRUGS (1)
  1. GABAPENTIN [Suspect]
     Indication: PAIN
     Dosage: 900 MG, 3X/DAY
     Route: 048
     Dates: start: 20090507

REACTIONS (2)
  - BLOOD UREA INCREASED [None]
  - DRUG INEFFECTIVE [None]
